FAERS Safety Report 9485930 (Version 2)
Quarter: 2013Q3

REPORT INFORMATION
  Report Type: Report from Study
  Country: JP (occurrence: JP)
  Receive Date: 20130829
  Receipt Date: 20130913
  Transmission Date: 20140515
  Serious: Yes (Death)
  Sender: FDA-Public Use
  Company Number: JP-UCBSA-096054

PATIENT
  Age: 62 Year
  Sex: Female

DRUGS (1)
  1. E KEPPRA [Suspect]
     Indication: PARTIAL SEIZURES WITH SECONDARY GENERALISATION
     Route: 048
     Dates: start: 20111130, end: 20111220

REACTIONS (1)
  - Brain neoplasm [Fatal]
